FAERS Safety Report 4384000-6 (Version None)
Quarter: 2004Q2

REPORT INFORMATION
  Report Type: 
  Country: None (occurrence: None)
  Receive Date: 20040623
  Receipt Date: 20040623
  Transmission Date: 20050107
  Serious: No
  Sender: FDA-Public Use
  Company Number: None

PATIENT
  Age: 75 Year
  Sex: Male
  Weight: 53.978 kg

DRUGS (2)
  1. DURAGESIC [Suspect]
     Indication: ARTHRITIS
     Dosage: PATCHS EVERY 72 HRS
     Route: 062
  2. DURAGESIC [Suspect]

REACTIONS (10)
  - ABNORMAL BEHAVIOUR [None]
  - ANOREXIA [None]
  - DEPRESSION [None]
  - DYSGEUSIA [None]
  - FEELING ABNORMAL [None]
  - FEELING COLD [None]
  - HYPOVENTILATION [None]
  - INSOMNIA [None]
  - MOOD ALTERED [None]
  - WEIGHT DECREASED [None]
